FAERS Safety Report 8414290-1 (Version None)
Quarter: 2012Q2

REPORT INFORMATION
  Report Type: 
  Country: None (occurrence: None)
  Receive Date: 20120605
  Receipt Date: 20120522
  Transmission Date: 20120825
  Serious: No
  Sender: FDA-Public Use
  Company Number: US-ASTRAZENECA-2012SE32863

PATIENT
  Age: 62 Year
  Sex: Female
  Weight: 81.6 kg

DRUGS (9)
  1. SEROQUEL XR [Suspect]
     Route: 048
  2. AMBIENT [Concomitant]
  3. PAXIL [Concomitant]
  4. SEROQUEL XR [Suspect]
     Indication: ANXIETY
     Route: 048
  5. SEROQUEL XR [Suspect]
     Route: 048
  6. SEROQUEL XR [Suspect]
     Indication: PANIC ATTACK
     Route: 048
  7. SEROQUEL XR [Suspect]
     Indication: DEPRESSION
     Route: 048
  8. SEROQUEL XR [Suspect]
     Route: 048
  9. ZESTRIL [Concomitant]
     Indication: HYPERTENSION

REACTIONS (5)
  - FEELING ABNORMAL [None]
  - WITHDRAWAL SYNDROME [None]
  - DRUG DOSE OMISSION [None]
  - NERVOUSNESS [None]
  - THERAPEUTIC RESPONSE UNEXPECTED [None]
